FAERS Safety Report 6168958-0 (Version None)
Quarter: 2009Q2

REPORT INFORMATION
  Report Type: 
  Country: None (occurrence: None)
  Receive Date: 20090427
  Receipt Date: 20090422
  Transmission Date: 20091009
  Serious: No
  Sender: FDA-Public Use
  Company Number: US-B.I. PHARMACEUTICALS,INC./RIDGEFIELD-2009-BP-05158BP

PATIENT
  Age: 70 Year
  Sex: Female

DRUGS (5)
  1. SPIRIVA [Suspect]
     Indication: EMPHYSEMA
     Dosage: 18MCG
     Route: 055
     Dates: start: 20080901
  2. OXYGEN [Concomitant]
     Indication: EMPHYSEMA
     Dates: end: 20080101
  3. FLUID PILL [Concomitant]
     Indication: HYPERTENSION
  4. TYLENOL [Concomitant]
     Indication: ARTHRITIS
  5. XALATAN [Concomitant]
     Indication: GLAUCOMA

REACTIONS (2)
  - DYSPNOEA [None]
  - GLUCOSE TOLERANCE IMPAIRED [None]
